FAERS Safety Report 11455997 (Version 2)
Quarter: 2015Q4

REPORT INFORMATION
  Report Type: Spontaneous
  Country: US (occurrence: US)
  Receive Date: 20150903
  Receipt Date: 20151001
  Transmission Date: 20160304
  Serious: Yes (Other)
  Sender: FDA-Public Use
  Company Number: US-TEVA-582372USA

PATIENT
  Sex: Male

DRUGS (5)
  1. CIPROFLOXACIN. [Suspect]
     Active Substance: CIPROFLOXACIN
     Route: 065
  2. HYDROXYCHLOROQUINE [Suspect]
     Active Substance: HYDROXYCHLOROQUINE
     Route: 065
  3. MEPERIDINE HYDROCHLORIDE. [Suspect]
     Active Substance: MEPERIDINE HYDROCHLORIDE
     Route: 065
  4. AZITHROMYCIN [Suspect]
     Active Substance: AZITHROMYCIN ANHYDROUS
     Route: 065
  5. CIMETIDINE [Suspect]
     Active Substance: CIMETIDINE
     Route: 065

REACTIONS (9)
  - Pyrexia [Unknown]
  - Drug hypersensitivity [Unknown]
  - Vomiting [Unknown]
  - Ventricular tachycardia [Recovered/Resolved]
  - Extrasystoles [Recovered/Resolved]
  - Nausea [Unknown]
  - Dizziness [Unknown]
  - Mental status changes [Unknown]
  - Diarrhoea [Unknown]
